FAERS Safety Report 21208001 (Version 1)
Quarter: 2022Q3

REPORT INFORMATION
  Report Type: Spontaneous
  Country: US (occurrence: US)
  Receive Date: 20220812
  Receipt Date: 20220812
  Transmission Date: 20221027
  Serious: No
  Sender: FDA-Public Use
  Company Number: US-PFIZER INC-202201051694

PATIENT
  Age: 75 Year
  Sex: Male
  Weight: 163.29 kg

DRUGS (1)
  1. ARTHROTEC [Suspect]
     Active Substance: DICLOFENAC SODIUM\MISOPROSTOL
     Indication: Arthritis
     Dosage: 75 MG, 2X/DAY (50MG 1 1/2 TABLETS TWICE DAILY)
     Route: 048

REACTIONS (2)
  - Illness [Unknown]
  - Product prescribing error [Unknown]
